FAERS Safety Report 8511345-8 (Version None)
Quarter: 2012Q3

REPORT INFORMATION
  Report Type: 
  Country: None (occurrence: None)
  Receive Date: 20120716
  Receipt Date: 20120709
  Transmission Date: 20120928
  Serious: Yes (Other)
  Sender: FDA-Public Use
  Company Number: JP-ASTELLAS-2012JP006364

PATIENT
  Age: 39 Year
  Sex: Female

DRUGS (1)
  1. PROTOPIC [Suspect]
     Indication: DERMATITIS
     Dosage: 0.1 %, UNK
     Route: 061
     Dates: start: 20100401, end: 20120702

REACTIONS (1)
  - LYMPHANGIOMA [None]
